FAERS Safety Report 8008736-0 (Version None)
Quarter: 2011Q4

REPORT INFORMATION
  Report Type: 
  Country: None (occurrence: None)
  Receive Date: 20111221
  Receipt Date: 20111212
  Transmission Date: 20120403
  Serious: Yes (Hospitalization, Other)
  Sender: FDA-Public Use
  Company Number: 2011MA017540

PATIENT
  Age: 41 Year
  Sex: Female
  Weight: 73 kg

DRUGS (19)
  1. METHYLDOPA [Suspect]
     Indication: HYPERTENSION
     Dosage: 500 MG, TID, PO
     Route: 048
  2. DIAZEPAM [Suspect]
     Indication: EPILEPSY
     Dosage: 10 MG, X2, IV
     Route: 042
  3. MAGNESIUM SULFATE [Suspect]
     Indication: ECLAMPSIA
     Dosage: 5 GM, Q4H, IM
     Route: 030
  4. ATRACURIUM BESYLATE [Suspect]
     Indication: NEUROMUSCULAR BLOCKADE
     Dosage: 30 MG
  5. GLUCOPYRROLATE (GLUCOPYRRONIUM BROMIDE) [Suspect]
     Indication: NEUROMUSCULAR BLOCKADE REVERSAL
  6. NEOSTIGMINE (NEOSTIGMINE) [Suspect]
     Indication: NEUROMUSCULAR BLOCKADE REVERSAL
  7. NITROGLYCERIN [Suspect]
     Indication: HYPERTENSION
     Dosage: 5 UG/KG/MIN, IV
     Route: 042
  8. AMLODIPINE [Suspect]
     Indication: HYPERTENSION
     Dosage: 5 MG, BID,
  9. LEVETIRACETAM [Suspect]
     Indication: EPILEPSY
     Dosage: 750 MG, BID, PO
     Route: 048
  10. VALPROATE SODIUM [Suspect]
     Indication: EPILEPSY
     Dosage: 400 MG, TID
  11. NITROUS OXIDE W/ OXYGEN [Suspect]
     Indication: ANAESTHESIA
     Dosage: 50 PCT
  12. LABETALOL HCL [Suspect]
     Indication: HYPERTENSION
     Dosage: 10 MG;X2;IV
     Route: 042
  13. LIDOCAINE [Suspect]
     Indication: ANAESTHESIA
     Dosage: 80 MG, IV
     Route: 042
  14. FENTANYL [Suspect]
     Indication: PAIN
     Dosage: 120 UG
  15. PHENYTOIN [Suspect]
     Indication: EPILEPSY
     Dosage: 100 MG, TID, PO
     Route: 048
  16. SUCCINYLCHOLINE (NO PREF. NAME) [Suspect]
     Indication: ANAESTHESIA
     Dosage: 100 MG, IV
     Route: 042
  17. THIOPENTAL SODIIUM (THIOPENTAL SODIIUM) [Suspect]
     Indication: ANAESTHESIA
     Dosage: 300 MG, IV
     Route: 042
  18. ISOFLURANE [Suspect]
     Indication: ANAESTHESIA
     Dosage: 0.5 PCT
  19. MIDAZOLAM [Suspect]
     Indication: EPILEPSY
     Dosage: 2 MG,X2, IV
     Route: 042

REACTIONS (15)
  - HEART RATE INCREASED [None]
  - PLATELET COUNT DECREASED [None]
  - ASPARTATE AMINOTRANSFERASE INCREASED [None]
  - BLOOD ALKALINE PHOSPHATASE INCREASED [None]
  - ECLAMPSIA [None]
  - OEDEMA PERIPHERAL [None]
  - HYPERTENSION [None]
  - ALANINE AMINOTRANSFERASE INCREASED [None]
  - CYANOSIS [None]
  - BLOOD BILIRUBIN INCREASED [None]
  - PROTEIN TOTAL DECREASED [None]
  - CONVULSION [None]
  - BLOOD ALBUMIN DECREASED [None]
  - EPISTAXIS [None]
  - HELLP SYNDROME [None]
